FAERS Safety Report 5113701-7 (Version None)
Quarter: 2006Q3

REPORT INFORMATION
  Report Type: 
  Country: None (occurrence: None)
  Receive Date: 20060925
  Receipt Date: 20060613
  Transmission Date: 20061208
  Serious: Yes (Hospitalization)
  Sender: FDA-Public Use
  Company Number: 2006UW12609

PATIENT
  Age: 2 Year

DRUGS (1)
  1. PULMICORT RESPULES [Suspect]
     Route: 055

REACTIONS (3)
  - GINGIVITIS [None]
  - HERPETIC GINGIVOSTOMATITIS [None]
  - STOMATITIS [None]
